FAERS Safety Report 15241979 (Version 1)
Quarter: 2018Q4

REPORT INFORMATION
  Report Type: Spontaneous
  Country: FR (occurrence: FR)
  Receive Date: 20180806
  Receipt Date: 20180806
  Transmission Date: 20190204
  Serious: Yes (Hospitalization, Other)
  Sender: FDA-Public Use
  Company Number: FR-AUROBINDO-AUR-APL-2018-033748

PATIENT
  Age: 47 Year
  Sex: Male

DRUGS (5)
  1. FLUOROURACIL. [Concomitant]
     Active Substance: FLUOROURACIL
     Indication: ADENOCARCINOMA OF COLON
     Dosage: 784 MILLIGRAM, CYCLICAL
     Route: 042
  2. OXALIPLATIN. [Suspect]
     Active Substance: OXALIPLATIN
     Dosage: 588 MILLIGRAM
     Route: 065
  3. FOLINIC ACID [Concomitant]
     Active Substance: LEUCOVORIN
     Indication: ADENOCARCINOMA OF COLON
     Dosage: 39 MILLIGRAM, CYCLICAL
     Route: 065
  4. OXALIPLATIN. [Suspect]
     Active Substance: OXALIPLATIN
     Indication: ADENOCARCINOMA OF COLON
     Dosage: CYCLICAL (RECEIVED A TOTAL DOSE OF 680 MG/M2)
     Route: 065
  5. IRINOTECAN [Suspect]
     Active Substance: IRINOTECAN
     Indication: PRODUCT USED FOR UNKNOWN INDICATION
     Dosage: 392 MILLIGRAM AT 42.5?C OVER THIRTY MINUTES

REACTIONS (4)
  - Respiratory failure [Recovered/Resolved]
  - Trismus [Unknown]
  - Organising pneumonia [Recovered/Resolved]
  - Respiratory disorder [Recovered/Resolved]
